FAERS Safety Report 9979707 (Version 1)
Quarter: 2014Q1

REPORT INFORMATION
  Report Type: Report from Study
  Country: US (occurrence: US)
  Receive Date: 20140306
  Receipt Date: 20140306
  Transmission Date: 20141002
  Serious: Yes (Hospitalization, Other)
  Sender: FDA-Public Use
  Company Number: US-ABBVIE-13P-163-1171094-00

PATIENT
  Sex: Female

DRUGS (2)
  1. HUMIRA [Suspect]
     Indication: CROHN^S DISEASE
  2. REMICADE [Concomitant]
     Indication: CROHN^S DISEASE
     Dates: end: 201301

REACTIONS (6)
  - Ileostomy [Not Recovered/Not Resolved]
  - Female sterilisation [Unknown]
  - Appendicectomy [Unknown]
  - Gallbladder operation [Unknown]
  - Infection [Unknown]
  - Crohn^s disease [Unknown]
